FAERS Safety Report 5085351-2 (Version None)
Quarter: 2006Q3

REPORT INFORMATION
  Report Type: 
  Country: None (occurrence: None)
  Receive Date: 20060731
  Receipt Date: 20051115
  Transmission Date: 20061208
  Serious: Yes (Hospitalization)
  Sender: FDA-Public Use
  Company Number: 200512201BWH

PATIENT
  Sex: Male

DRUGS (2)
  1. AVELOX [Suspect]
     Indication: ASPIRATION
     Dosage: 400 MG, ONCE, ORAL
     Route: 048
  2. AVELOX [Suspect]
     Indication: FEELING ABNORMAL
     Dosage: 400 MG, ONCE, ORAL
     Route: 048

REACTIONS (4)
  - LOSS OF CONSCIOUSNESS [None]
  - PALPITATIONS [None]
  - RASH [None]
  - SYNCOPE [None]
